FAERS Safety Report 6857539-9 (Version None)
Quarter: 2010Q3

REPORT INFORMATION
  Report Type: 
  Country: None (occurrence: None)
  Receive Date: 20100719
  Receipt Date: 20080128
  Transmission Date: 20110219
  Serious: Yes (Hospitalization)
  Sender: FDA-Public Use
  Company Number: US-PFIZER INC-2008008539

PATIENT
  Sex: Female
  Weight: 53.1 kg

DRUGS (5)
  1. CHANTIX [Suspect]
     Indication: SMOKING CESSATION THERAPY
     Dates: start: 20071116, end: 20080126
  2. PLAVIX [Concomitant]
  3. ASPIRIN [Concomitant]
  4. ISOSORBIDE [Concomitant]
  5. ZETIA [Concomitant]

REACTIONS (6)
  - ABDOMINAL DISTENSION [None]
  - ANXIETY [None]
  - CHEST PAIN [None]
  - CONSTIPATION [None]
  - DEPRESSED MOOD [None]
  - HOT FLUSH [None]
